FAERS Safety Report 11312476 (Version 1)
Quarter: 2015Q3

REPORT INFORMATION
  Report Type: Spontaneous
  Country: GB (occurrence: GB)
  Receive Date: 20150727
  Receipt Date: 20150727
  Transmission Date: 20151125
  Serious: Yes (Hospitalization)
  Sender: FDA-Public Use
  Company Number: PHHY2015GB085540

PATIENT
  Age: 17 Year
  Sex: Female
  Weight: 83 kg

DRUGS (1)
  1. DICLOFENAC SANDOZ [Suspect]
     Active Substance: DICLOFENAC SODIUM
     Indication: PRODUCT USED FOR UNKNOWN INDICATION
     Route: 065

REACTIONS (2)
  - Abdominal discomfort [Recovered/Resolved]
  - Gastrointestinal disorder [Recovered/Resolved]
